FAERS Safety Report 4929821-3 (Version None)
Quarter: 2006Q1

REPORT INFORMATION
  Report Type: 
  Country: None (occurrence: None)
  Receive Date: 20060301
  Receipt Date: 20060221
  Transmission Date: 20060701
  Serious: Yes (Hospitalization)
  Sender: FDA-Public Use
  Company Number: US-MERCK-0602USA05393

PATIENT
  Age: 69 Year
  Sex: Male
  Weight: 79 kg

DRUGS (4)
  1. VIOXX [Suspect]
     Indication: ARTHRITIS
     Route: 048
     Dates: start: 20010712, end: 20040930
  2. IBUPROFEN [Concomitant]
     Route: 065
  3. LOPRESSOR [Concomitant]
     Route: 065
  4. METOPROLOL [Concomitant]
     Route: 065

REACTIONS (8)
  - CARDIAC MURMUR [None]
  - CAROTID ARTERY STENOSIS [None]
  - HEART RATE IRREGULAR [None]
  - HERNIA [None]
  - MYOCARDIAL INFARCTION [None]
  - OEDEMA PERIPHERAL [None]
  - PANIC DISORDER [None]
  - RENAL DISORDER [None]
